FAERS Safety Report 4823884-1 (Version None)
Quarter: 2005Q4

REPORT INFORMATION
  Report Type: 
  Country: None (occurrence: None)
  Receive Date: 20051107
  Receipt Date: 20051010
  Transmission Date: 20060501
  Serious: Yes (Hospitalization)
  Sender: FDA-Public Use
  Company Number: 2005001994

PATIENT
  Age: 65 Year
  Sex: Male
  Weight: 80.7403 kg

DRUGS (1)
  1. TARCEVA [Suspect]
     Dosage: 150 MG (QD), ORAL
     Route: 048
     Dates: start: 20050501, end: 20050504

REACTIONS (10)
  - ASTHENIA [None]
  - DECREASED APPETITE [None]
  - DUODENAL ULCER [None]
  - ENTEROCOCCAL BACTERAEMIA [None]
  - NAUSEA [None]
  - OESOPHAGEAL ULCER [None]
  - PYREXIA [None]
  - RASH [None]
  - STOMATITIS [None]
  - VOMITING [None]
